FAERS Safety Report 25265876 (Version 1)
Quarter: 2025Q2

REPORT INFORMATION
  Report Type: Spontaneous
  Country: GB (occurrence: GB)
  Receive Date: 20250503
  Receipt Date: 20250503
  Transmission Date: 20250717
  Serious: Yes (Life-Threatening)
  Sender: ALKEM
  Company Number: None

PATIENT

DRUGS (2)
  1. ACETAMINOPHEN [Suspect]
     Active Substance: ACETAMINOPHEN
     Indication: Oropharyngeal pain
     Route: 065
  2. IBUPROFEN [Suspect]
     Active Substance: IBUPROFEN
     Indication: Oropharyngeal pain
     Route: 065

REACTIONS (9)
  - Communication disorder [Unknown]
  - Choking sensation [Unknown]
  - Ageusia [Unknown]
  - Hiccups [Unknown]
  - Salivary hypersecretion [Unknown]
  - Suffocation feeling [Unknown]
  - Dyspnoea [Unknown]
  - Decreased appetite [Unknown]
  - Product after taste [Unknown]
